FAERS Safety Report 4657427-2 (Version None)
Quarter: 2005Q2

REPORT INFORMATION
  Report Type: 
  Country: None (occurrence: None)
  Receive Date: 20050509
  Receipt Date: 20050509
  Transmission Date: 20051028
  Serious: Yes (Hospitalization)
  Sender: FDA-Public Use
  Company Number: None

PATIENT
  Sex: Female
  Weight: 98.4306 kg

DRUGS (2)
  1. DILANTIN [Suspect]
     Dosage: 2 CAPS IN AM 3 CAPS IN PM (LIFETIME)
  2. TEGRETOL [Suspect]
     Dosage: 2 TABS BID (LIFETIME)

REACTIONS (2)
  - CONVULSION [None]
  - PHARMACEUTICAL PRODUCT COMPLAINT [None]
